FAERS Safety Report 19093214 (Version 2)
Quarter: 2022Q2

REPORT INFORMATION
  Report Type: Spontaneous
  Country: CH (occurrence: CH)
  Receive Date: 20210405
  Receipt Date: 20220606
  Transmission Date: 20220721
  Serious: Yes (Life-Threatening, Hospitalization, Other)
  Sender: FDA-Public Use
  Company Number: None

PATIENT

DRUGS (7)
  1. LAMICTAL [Suspect]
     Active Substance: LAMOTRIGINE
     Indication: Epilepsy
     Dosage: 200 MG (IN TOTAL)
     Route: 048
     Dates: start: 20210317, end: 20210317
  2. LAMICTAL [Suspect]
     Active Substance: LAMOTRIGINE
     Dosage: 300 MG, BID
     Route: 048
     Dates: start: 20210319
  3. LAMICTAL [Suspect]
     Active Substance: LAMOTRIGINE
     Dosage: 300 MG, BID
     Route: 048
     Dates: end: 20210317
  4. KEPPRA [Suspect]
     Active Substance: LEVETIRACETAM
     Indication: Epilepsy
     Dosage: 500 MG (IN TOTAL)
     Route: 048
     Dates: start: 20210317, end: 20210317
  5. KEPPRA [Suspect]
     Active Substance: LEVETIRACETAM
     Dosage: 500 MG (IN TOTAL)
     Route: 048
     Dates: end: 20210317
  6. KEPPRA [Suspect]
     Active Substance: LEVETIRACETAM
     Dosage: 500 MG, QD
     Route: 048
     Dates: start: 20210321
  7. PHENOBARBITAL [Concomitant]
     Active Substance: PHENOBARBITAL
     Indication: Product used for unknown indication
     Dosage: 100 MG
     Route: 065

REACTIONS (2)
  - Altered state of consciousness [Recovered/Resolved]
  - Suicide attempt [Recovered/Resolved]

NARRATIVE: CASE EVENT DATE: 20210317
